FAERS Safety Report 13445287 (Version 1)
Quarter: 2017Q2

REPORT INFORMATION
  Report Type: Spontaneous
  Country: CH (occurrence: CH)
  Receive Date: 20170414
  Receipt Date: 20170414
  Transmission Date: 20170830
  Serious: Yes (Disabling, Other)
  Sender: FDA-Public Use
  Company Number: CH-GILEAD-2017-0267360

PATIENT
  Age: 43 Year
  Sex: Female
  Weight: 56 kg

DRUGS (4)
  1. ALDACTONE [Concomitant]
     Active Substance: SPIRONOLACTONE
     Dosage: UNK
     Dates: start: 20160219
  2. TOREM                              /01036501/ [Concomitant]
     Active Substance: TORSEMIDE
     Dosage: UNK
     Dates: start: 20160219
  3. HARVONI [Suspect]
     Active Substance: LEDIPASVIR\SOFOSBUVIR
     Indication: CHRONIC HEPATITIS C
     Dosage: 1 DF, UNK
     Route: 048
     Dates: start: 20160629, end: 20161214
  4. CALCIMAGON D3 [Concomitant]
     Active Substance: CALCIUM\CHOLECALCIFEROL
     Dosage: UNK
     Dates: start: 20160219

REACTIONS (1)
  - Cataract cortical [Not Recovered/Not Resolved]

NARRATIVE: CASE EVENT DATE: 20161225
